FAERS Safety Report 16891009 (Version 1)
Quarter: 2019Q4

REPORT INFORMATION
  Report Type: Spontaneous
  Country: US (occurrence: US)
  Receive Date: 20190812
  Receipt Date: 20190812
  Transmission Date: 20200122
  Serious: Yes (Hospitalization)
  Sender: FDA-Public Use
  Company Number: None

PATIENT
  Sex: Male

DRUGS (1)
  1. NEUPOGEN [Suspect]
     Active Substance: FILGRASTIM
     Indication: HEPATIC CANCER
     Dosage: ?          OTHER FREQUENCY:0.8ML QD FOR 4 DAY;?
     Route: 058
     Dates: start: 20190809

REACTIONS (1)
  - Hospitalisation [None]
